FAERS Safety Report 23358040 (Version 1)
Quarter: 2024Q1

REPORT INFORMATION
  Report Type: Spontaneous
  Country: US (occurrence: None)
  Receive Date: 20240101
  Receipt Date: 20240101
  Transmission Date: 20240409
  Serious: Yes (Other)
  Sender: FDA-Public Use
  Company Number: None

PATIENT
  Age: 72 Year
  Sex: Female
  Weight: 51.75 kg

DRUGS (1)
  1. TRIAMCINOLONE [Suspect]
     Active Substance: TRIAMCINOLONE
     Indication: Eczema
     Dosage: FREQUENCY : TWICE A DAY;?
     Route: 061
     Dates: start: 20231108, end: 20231229

REACTIONS (1)
  - Topical steroid withdrawal reaction [None]

NARRATIVE: CASE EVENT DATE: 20231230
